FAERS Safety Report 23188434 (Version 3)
Quarter: 2024Q1

REPORT INFORMATION
  Report Type: Spontaneous
  Country: BR (occurrence: BR)
  Receive Date: 20231115
  Receipt Date: 20240202
  Transmission Date: 20240410
  Serious: Yes (Life-Threatening, Hospitalization, Disabling, Other)
  Sender: FDA-Public Use
  Company Number: BR-BoehringerIngelheim-2023-BI-272622

PATIENT
  Age: 59 Year
  Sex: Male
  Weight: 95 kg

DRUGS (7)
  1. SPIRIVA RESPIMAT [Suspect]
     Active Substance: TIOTROPIUM BROMIDE
     Indication: Lung neoplasm
     Dosage: 2 PUFFS TWICE A DAY?FORM OF ADMIN.: AEROSOL
     Route: 048
  2. SPIRIVA RESPIMAT [Suspect]
     Active Substance: TIOTROPIUM BROMIDE
     Indication: Lung disorder
     Dosage: PATIENT INFORMED THAT THE DAILY DOSE ADMINISTERED WAS 2.5MCG.?FORM OF ADMIN.: AEROSOL
     Route: 048
     Dates: end: 2023
  3. SPIRIVA RESPIMAT [Suspect]
     Active Substance: TIOTROPIUM BROMIDE
     Dosage: TWO DOSES ONCE A DAY.
     Route: 055
  4. OLODATEROL HYDROCHLORIDE\TIOTROPIUM BROMIDE MONOHYDRATE [Suspect]
     Active Substance: OLODATEROL HYDROCHLORIDE\TIOTROPIUM BROMIDE MONOHYDRATE
     Indication: Lung disorder
     Dosage: 1 PUFF IN THE MORNING AND 1 PUFF IN THE EVENING.?FORM OF ADMIN.: AEROSOL
     Route: 048
  5. OLODATEROL HYDROCHLORIDE\TIOTROPIUM BROMIDE MONOHYDRATE [Suspect]
     Active Substance: OLODATEROL HYDROCHLORIDE\TIOTROPIUM BROMIDE MONOHYDRATE
     Dosage: 2 CONSECUTIVE PUFFS IN THE MORNING.?FORM OF ADMIN.: AEROSOL
     Route: 055
  6. ALENIA [Concomitant]
     Indication: Chronic obstructive pulmonary disease
     Dosage: 1 ACTIVATION IN THE MORNING AND 1 IN THE EVENING.
     Route: 048
     Dates: start: 2018
  7. UNSPECIFIED INGREDIENT [Concomitant]
     Active Substance: UNSPECIFIED INGREDIENT
     Indication: Muscle strength abnormal
     Route: 048

REACTIONS (13)
  - Bronchial neoplasm [Recovered/Resolved]
  - Coma [Recovered/Resolved]
  - COVID-19 [Recovered/Resolved]
  - Gangrene [Recovered/Resolved]
  - Leg amputation [Recovering/Resolving]
  - Blood cholesterol increased [Not Recovered/Not Resolved]
  - Thrombosis [Recovered/Resolved with Sequelae]
  - Muscle atrophy [Recovered/Resolved]
  - Hypertension [Not Recovered/Not Resolved]
  - Intentional overdose [Recovered/Resolved]
  - Intentional product misuse [Unknown]
  - Intentional product use issue [Unknown]
  - Chronic obstructive pulmonary disease [Unknown]

NARRATIVE: CASE EVENT DATE: 20190101
